FAERS Safety Report 14869409 (Version 1)
Quarter: 2018Q2

REPORT INFORMATION
  Report Type: Spontaneous
  Country: IT (occurrence: IT)
  Receive Date: 20180509
  Receipt Date: 20180509
  Transmission Date: 20180711
  Serious: Yes (Other)
  Sender: FDA-Public Use
  Company Number: IT-SUN PHARMACEUTICAL INDUSTRIES LTD-2018RR-172304

PATIENT
  Age: 54 Year
  Sex: Male
  Weight: 67 kg

DRUGS (4)
  1. ONDANSETRON HYDROCHLORIDE. [Suspect]
     Active Substance: ONDANSETRON HYDROCHLORIDE
     Indication: ANTIEMETIC SUPPORTIVE CARE
     Dosage: CYCLICAL
     Route: 042
     Dates: start: 20180209, end: 20180327
  2. HUMALOG [Concomitant]
     Active Substance: INSULIN LISPRO
     Indication: DIABETES MELLITUS
     Dosage: ()
     Route: 065
     Dates: start: 20170314, end: 20180416
  3. ABRAXANE [Suspect]
     Active Substance: PACLITAXEL
     Indication: DUCTAL ADENOCARCINOMA OF PANCREAS
     Dosage: CYCLICAL
     Route: 065
     Dates: start: 20180209, end: 20180327
  4. GEMCITABINE [Suspect]
     Active Substance: GEMCITABINE\GEMCITABINE HYDROCHLORIDE
     Indication: DUCTAL ADENOCARCINOMA OF PANCREAS
     Dosage: CYCLICAL
     Route: 042
     Dates: start: 20180209, end: 20180327

REACTIONS (5)
  - Pain [Recovering/Resolving]
  - Muscle oedema [Recovering/Resolving]
  - Limb discomfort [Recovering/Resolving]
  - Blood creatine phosphokinase increased [Recovering/Resolving]
  - Axonal neuropathy [Recovering/Resolving]

NARRATIVE: CASE EVENT DATE: 20180327
